FAERS Safety Report 5022595-X (Version None)
Quarter: 2006Q2

REPORT INFORMATION
  Report Type: 
  Country: None (occurrence: None)
  Receive Date: 20060605
  Receipt Date: 20060517
  Transmission Date: 20061013
  Serious: Yes (Other)
  Sender: FDA-Public Use
  Company Number: BR-2006-012348

PATIENT
  Age: 33 Year
  Sex: Female

DRUGS (3)
  1. BETASERON [Suspect]
     Indication: MULTIPLE SCLEROSIS
     Dosage: 1 ML, EVERY 2D, SUBCUTANEOUS
     Route: 058
     Dates: start: 20060301, end: 20060401
  2. TRILEPTAL [Concomitant]
  3. ANTIDEPRESSANTS [Concomitant]

REACTIONS (6)
  - BALANCE DISORDER [None]
  - DIFFICULTY IN WALKING [None]
  - MUSCLE SPASMS [None]
  - OPTIC NEURITIS [None]
  - PARAESTHESIA [None]
  - PARAPARESIS [None]
